FAERS Safety Report 20116657 (Version 1)
Quarter: 2021Q4

REPORT INFORMATION
  Report Type: Spontaneous
  Country: US (occurrence: US)
  Receive Date: 20211126
  Receipt Date: 20211126
  Transmission Date: 20220303
  Serious: No
  Sender: FDA-Public Use
  Company Number: US-PURDUE PHARMA-USA-2021-0270416

PATIENT
  Sex: Female
  Weight: 58.957 kg

DRUGS (5)
  1. MS CONTIN [Suspect]
     Active Substance: MORPHINE SULFATE
     Indication: Spinal operation
     Dosage: 15 MG, BID
     Route: 048
  2. MS CONTIN [Suspect]
     Active Substance: MORPHINE SULFATE
     Indication: Neck surgery
  3. MS CONTIN [Suspect]
     Active Substance: MORPHINE SULFATE
     Indication: Ankle fracture
  4. MS CONTIN [Suspect]
     Active Substance: MORPHINE SULFATE
     Indication: Lower limb fracture
  5. MS CONTIN [Suspect]
     Active Substance: MORPHINE SULFATE
     Indication: Wrist fracture

REACTIONS (6)
  - Bile output increased [Unknown]
  - Muscle spasms [Unknown]
  - Abdominal distension [Unknown]
  - Vision blurred [Unknown]
  - Diarrhoea [Unknown]
  - Fatigue [Unknown]

NARRATIVE: CASE EVENT DATE: 20210501
